FAERS Safety Report 4633048-2 (Version None)
Quarter: 2005Q2

REPORT INFORMATION
  Report Type: 
  Country: None (occurrence: None)
  Receive Date: 20050411
  Receipt Date: 20050411
  Transmission Date: 20051028
  Serious: Yes (Life-Threatening, Hospitalization)
  Sender: FDA-Public Use
  Company Number: None

PATIENT
  Age: 74 Year
  Sex: Female
  Weight: 56.6996 kg

DRUGS (4)
  1. BEXTRA [Suspect]
     Indication: OSTEOARTHRITIS
     Dosage: 20 MG DAILY
     Dates: start: 20040104, end: 20050320
  2. SYNTHROID [Concomitant]
  3. PREMARIN [Concomitant]
  4. COZAAR [Concomitant]

REACTIONS (1)
  - MYOCARDIAL INFARCTION [None]
